FAERS Safety Report 15802693 (Version 1)
Quarter: 2019Q1

REPORT INFORMATION
  Report Type: Spontaneous
  Country: DK (occurrence: DK)
  Receive Date: 20190109
  Receipt Date: 20190109
  Transmission Date: 20190417
  Serious: Yes (Disabling)
  Sender: FDA-Public Use
  Company Number: DK-TEVA-2019-DK-996541

PATIENT
  Age: 62 Year
  Sex: Male

DRUGS (1)
  1. ISOTRETINOIN. [Suspect]
     Active Substance: ISOTRETINOIN
     Indication: FOLLICULITIS
     Dosage: STRENGTH: 20MG?DOSE: FROM 20MG TO 40MG DAILY
     Route: 048
     Dates: start: 20160502, end: 20171107

REACTIONS (7)
  - Eyelid operation [Recovered/Resolved]
  - Lacrimation increased [Recovering/Resolving]
  - Ocular hyperaemia [Unknown]
  - Dermatochalasis [Unknown]
  - Conjunctivoplasty [Recovered/Resolved]
  - Blepharitis [Unknown]
  - Eye irritation [Unknown]

NARRATIVE: CASE EVENT DATE: 201605
